FAERS Safety Report 16033567 (Version 1)
Quarter: 2019Q1

REPORT INFORMATION
  Report Type: Spontaneous
  Country: US (occurrence: US)
  Receive Date: 20190305
  Receipt Date: 20190305
  Transmission Date: 20190418
  Serious: No
  Sender: FDA-Public Use
  Company Number: US-IMPAX LABORATORIES, LLC-2018-IPXL-02396

PATIENT
  Sex: Female
  Weight: 52 kg

DRUGS (4)
  1. RYTARY [Suspect]
     Active Substance: CARBIDOPA\LEVODOPA
     Indication: PARKINSON^S DISEASE
     Dosage: 48.75/195 MG, 1 CAPSULE FOUR TIME A DAY
     Route: 048
     Dates: start: 20180702, end: 2018
  2. NORVASC [Concomitant]
     Active Substance: AMLODIPINE BESYLATE
     Indication: HYPERTENSION
     Dosage: 5 MG, QD
     Route: 048
     Dates: start: 201804
  3. OXYBUTYNIN HCL ER [Concomitant]
     Indication: URINARY TRACT DISORDER
     Dosage: 5 MG, QD
     Route: 048
     Dates: start: 201806
  4. COZAAR [Concomitant]
     Active Substance: LOSARTAN POTASSIUM
     Indication: HYPERTENSION
     Dosage: 25 MG, QD
     Route: 048
     Dates: start: 201804

REACTIONS (3)
  - Fear [Unknown]
  - Drug ineffective [Unknown]
  - Tremor [Recovering/Resolving]

NARRATIVE: CASE EVENT DATE: 2018
